FAERS Safety Report 6158438-0 (Version None)
Quarter: 2009Q2

REPORT INFORMATION
  Report Type: 
  Country: None (occurrence: None)
  Receive Date: 20090417
  Receipt Date: 20090413
  Transmission Date: 20091009
  Serious: Yes (Other)
  Sender: FDA-Public Use
  Company Number: US-ASTRAZENECA-2009UW09310

PATIENT
  Age: 63 Year
  Sex: Male
  Weight: 109.8 kg

DRUGS (8)
  1. ZOLADEX [Suspect]
     Route: 058
     Dates: start: 20080424
  2. ANDROGEL [Suspect]
     Indication: ILL-DEFINED DISORDER
     Dates: start: 20080424, end: 20080725
  3. PLACEBO [Suspect]
  4. TOPROL-XL [Concomitant]
     Route: 048
  5. PRAVASTATIN [Concomitant]
  6. OMEPRAZOLE [Concomitant]
  7. MULTI-VITAMIN [Concomitant]
  8. FISH OIL [Concomitant]

REACTIONS (1)
  - HYPOGONADISM [None]
